FAERS Safety Report 23231169 (Version 2)
Quarter: 2024Q3

REPORT INFORMATION
  Report Type: Spontaneous
  Country: NL (occurrence: NL)
  Receive Date: 20231127
  Receipt Date: 20240904
  Transmission Date: 20241017
  Serious: Yes (Hospitalization)
  Sender: AUROBINDO
  Company Number: NL-BAXTER-2023BAX035502

PATIENT
  Age: 50 Year
  Sex: Female
  Weight: 59.3 kg

DRUGS (22)
  1. DOXORUBICIN [Suspect]
     Active Substance: DOXORUBICIN
     Indication: Diffuse large B-cell lymphoma stage IV
     Dosage: 83 MILLIGRAM EVERY 3 WEEKS, ONGOING
     Route: 042
     Dates: start: 20230927
  2. PREDNISONE [Suspect]
     Active Substance: PREDNISONE
     Indication: Diffuse large B-cell lymphoma stage IV
     Dosage: 100 MILLIGRAM, DAILY,
     Route: 048
     Dates: start: 20230927
  3. CYCLOPHOSPHAMIDE [Suspect]
     Active Substance: CYCLOPHOSPHAMIDE
     Indication: Diffuse large B-cell lymphoma stage IV
     Dosage: 1245 MILLIGRAM, EVERY 3 WEEKS, ONGOING
     Route: 042
     Dates: start: 20230927
  4. CYCLOPHOSPHAMIDE [Suspect]
     Active Substance: CYCLOPHOSPHAMIDE
     Dosage: 1240 MG, EVERY 3 WEEKS
     Route: 042
     Dates: start: 20230927
  5. EPCORITAMAB [Suspect]
     Active Substance: EPCORITAMAB
     Indication: Diffuse large B-cell lymphoma stage IV
     Dosage: 0.16 MILLIGRAM, (0.16 MG, PRIMING DOSE; C1, D1, TOTAL)
     Route: 058
     Dates: start: 20230927, end: 20230927
  6. EPCORITAMAB [Suspect]
     Active Substance: EPCORITAMAB
     Dosage: 0.16 MILLIGRAM, (0.16 MG, RE-PRIMING DOSE, TOTAL)
     Route: 058
     Dates: start: 20231011, end: 20231011
  7. EPCORITAMAB [Suspect]
     Active Substance: EPCORITAMAB
     Dosage: 48 MILLIGRAM, (48 MG, FULL DOSE; C1, D15 + 22, EVERY 1 WEEKS)
     Route: 058
     Dates: start: 20231030
  8. EPCORITAMAB [Suspect]
     Active Substance: EPCORITAMAB
     Dosage: 0.8 MILLIGRAM, (0.8 MG, INTERMEDIATE DOSE, TOTAL)
     Route: 058
     Dates: start: 20231018, end: 20231018
  9. RITUXIMAB [Suspect]
     Active Substance: RITUXIMAB
     Indication: Diffuse large B-cell lymphoma stage IV
     Dosage: 622.5 MILLIGRAM, (EVERY 3 WEEKS, ONGOING)
     Route: 042
     Dates: start: 20230927
  10. RITUXIMAB [Suspect]
     Active Substance: RITUXIMAB
     Dosage: 600 MG, EVERY 3 WEEKS, ONGOING
     Route: 042
     Dates: start: 20230927
  11. VINCRISTINE [Suspect]
     Active Substance: VINCRISTINE
     Indication: Diffuse large B-cell lymphoma stage IV
     Dosage: 2 MILLIGRAM, EVERY 3 WEEKS, ONGOING
     Route: 042
     Dates: start: 20230927
  12. PEGFILGRASTIM [Concomitant]
     Active Substance: PEGFILGRASTIM
     Indication: Neutropenia
     Dosage: 0.6 MILLILITER, EVERY 3 WEEKS
     Route: 065
     Dates: start: 20230928
  13. ALLOPURINOL [Concomitant]
     Active Substance: ALLOPURINOL
     Indication: Prophylaxis
     Dosage: 300 MILLIGRAM, ONCE A DAY
     Route: 065
     Dates: start: 20230927
  14. SULFAMETHOXAZOLE\TRIMETHOPRIM [Concomitant]
     Active Substance: SULFAMETHOXAZOLE\TRIMETHOPRIM
     Indication: Antifungal prophylaxis
     Dosage: 480 MILLIGRAM, ONCE A DAY
     Route: 065
     Dates: start: 20230927
  15. DEXAMETHASONE [Concomitant]
     Active Substance: DEXAMETHASONE
     Indication: Prophylaxis
     Dosage: 16 MILLIGRAM, ONCE A DAY
     Route: 065
     Dates: start: 20231011
  16. ACETAMINOPHEN [Concomitant]
     Active Substance: ACETAMINOPHEN
     Indication: Chemotherapy side effect prophylaxis
     Dosage: 1000 MILLIGRAM, CYCLICAL
     Route: 065
     Dates: start: 20230927
  17. ACETAMINOPHEN [Concomitant]
     Active Substance: ACETAMINOPHEN
     Indication: Pain prophylaxis
     Dosage: 1000 MG/20 MG, 2/DAYS
     Route: 065
     Dates: start: 20230901
  18. PANTOPRAZOLE SODIUM [Concomitant]
     Active Substance: PANTOPRAZOLE SODIUM
     Indication: Prophylaxis against gastrointestinal ulcer
     Dosage: 40 MILLIGRAM, ONCE A DAY
     Route: 065
     Dates: start: 20230927
  19. Netupitant and palonosetron hydrochloride [Concomitant]
     Indication: Prophylaxis of nausea and vomiting
     Dosage: 300/0.5 MG, EVERY 3 WEEK
     Route: 065
     Dates: start: 20230927
  20. CLEMASTINE [Concomitant]
     Active Substance: CLEMASTINE
     Indication: Prophylaxis
     Dosage: 2 MILLIGRAM, EVERY 3 WEEKS
     Route: 065
     Dates: start: 20230927
  21. METOCLOPRAMIDE [Concomitant]
     Active Substance: METOCLOPRAMIDE
     Indication: Constipation prophylaxis
     Dosage: 10 MILLIGRAM, AS NECESSARY
     Route: 065
     Dates: start: 20230926
  22. MOVICOLON [Concomitant]
     Active Substance: POLYETHYLENE GLYCOL 3350\POTASSIUM CHLORIDE\SODIUM BICARBONATE\SODIUM CHLORIDE
     Indication: Constipation prophylaxis
     Dosage: 13.8 GRAM, AS NECESSARY
     Route: 065
     Dates: start: 20230926

REACTIONS (2)
  - Pyrexia [Recovered/Resolved]
  - Oral herpes [Recovered/Resolved]

NARRATIVE: CASE EVENT DATE: 20231025
